FAERS Safety Report 4287500-2 (Version None)
Quarter: 2004Q1

REPORT INFORMATION
  Report Type: 
  Country: None (occurrence: None)
  Receive Date: 20040205
  Receipt Date: 20021022
  Transmission Date: 20041129
  Serious: Yes (Disabling)
  Sender: FDA-Public Use
  Company Number: B01200202905

PATIENT
  Age: 68 Year
  Sex: Female

DRUGS (2)
  1. (CLOPIDOGREL/ASPIRIN)     UNIT DOSE: UNKNOWN [Suspect]
     Indication: ISCHAEMIC STROKE
     Dosage: CLOPIDOGREL 75 MG + ASPIRIN 75 MG O.D.; ORAL
     Route: 048
     Dates: start: 20011109, end: 20020222
  2. (CLOPIDOGREL/ASPIRIN)   UNIT DOSE: UNKNOWN [Suspect]
     Indication: TRANSIENT ISCHAEMIC ATTACK
     Dosage: CLOPIDOGREL 75 MG + ASPIRIN 75 MG O.D.; ORAL
     Route: 048
     Dates: start: 20020401

REACTIONS (1)
  - DUODENAL ULCER [None]
